FAERS Safety Report 5814873-9 (Version None)
Quarter: 2008Q3

REPORT INFORMATION
  Report Type: 
  Country: None (occurrence: None)
  Receive Date: 20080718
  Receipt Date: 20080624
  Transmission Date: 20090109
  Serious: No
  Sender: FDA-Public Use
  Company Number: US-AVENTIS-200813879US

PATIENT
  Age: 52 Year
  Sex: Female

DRUGS (9)
  1. TAXOTERE [Suspect]
     Indication: BREAST CANCER
     Route: 042
  2. TOPROL-XL [Concomitant]
     Dosage: DOSE: UNK
  3. FLUOXETINE [Concomitant]
     Dosage: DOSE: UNK
  4. HYZAAR [Concomitant]
     Dosage: DOSE: UNK
  5. HYDROXYZINE [Concomitant]
     Dosage: DOSE: UNK
  6. PRILOSEC [Concomitant]
     Dosage: DOSE: UNK
  7. ZANTAC [Concomitant]
     Dosage: DOSE: UNK
  8. COMPAZINE [Concomitant]
  9. XANAX [Concomitant]
     Dosage: DOSE: UNK

REACTIONS (1)
  - TREMOR [None]
